FAERS Safety Report 11865290 (Version 1)
Quarter: 2015Q4

REPORT INFORMATION
  Report Type: Spontaneous
  Country: US (occurrence: US)
  Receive Date: 20151223
  Receipt Date: 20151223
  Transmission Date: 20160305
  Serious: Yes (Other)
  Sender: FDA-Public Use
  Company Number: US-SHIRE-US201516466

PATIENT
  Sex: Male
  Weight: 104.31 kg

DRUGS (9)
  1. XOLAIR [Concomitant]
     Active Substance: OMALIZUMAB
     Indication: PRODUCT USED FOR UNKNOWN INDICATION
     Dosage: 375 MG, 1X/2WKS
     Route: 058
     Dates: start: 20031210
  2. PROAIR HFA [Concomitant]
     Active Substance: ALBUTEROL SULFATE
     Indication: DYSPNOEA
     Dosage: 2 DF(PUFFS), AS REQ^D (Q 4 HOURS)
     Route: 055
     Dates: start: 20100912
  3. PROAIR HFA [Concomitant]
     Active Substance: ALBUTEROL SULFATE
     Indication: ASTHMA
  4. CINRYZE [Suspect]
     Active Substance: HUMAN C1-ESTERASE INHIBITOR
     Indication: HEREDITARY ANGIOEDEMA
     Dosage: 1000 UNITS, UNKNOWN(Q 2X/WEEK-PRN)
     Route: 042
     Dates: start: 20130616, end: 20141119
  5. FIRAZYR [Suspect]
     Active Substance: ICATIBANT ACETATE
     Indication: HEREDITARY ANGIOEDEMA
     Dosage: 30 MG, AS REQ^D
     Route: 058
  6. EPIPEN [Concomitant]
     Active Substance: EPINEPHRINE
     Indication: URTICARIA
     Dosage: UNK, UNKNOWN
     Route: 065
  7. CINRYZE [Suspect]
     Active Substance: HUMAN C1-ESTERASE INHIBITOR
     Indication: PROPHYLAXIS
  8. PULMICORT TURBUHALER [Concomitant]
     Active Substance: BUDESONIDE
     Indication: DYSPNOEA
     Dosage: UNK, UNKNOWN
     Route: 055
     Dates: start: 20141120
  9. ATARAX [Concomitant]
     Active Substance: HYDROXYZINE\HYDROXYZINE HYDROCHLORIDE
     Indication: URTICARIA
     Dosage: 20 MG(1-2 TABS), AS REQ^D(Q 6H)
     Route: 048
     Dates: start: 20010718

REACTIONS (2)
  - Lung cyst [Unknown]
  - Lung disorder [Unknown]
